FAERS Safety Report 20977013 (Version 1)
Quarter: 2022Q2

REPORT INFORMATION
  Report Type: Spontaneous
  Country: US (occurrence: US)
  Receive Date: 20220617
  Receipt Date: 20220617
  Transmission Date: 20220721
  Serious: No
  Sender: FDA-Public Use
  Company Number: US-ELI_LILLY_AND_COMPANY-US202205008695

PATIENT
  Age: 72 Year
  Sex: Male

DRUGS (3)
  1. TRULICITY [Suspect]
     Active Substance: DULAGLUTIDE
     Indication: Type 2 diabetes mellitus
     Dosage: 1.5 MG, WEEKLY (1/W)
     Route: 058
  2. TRULICITY [Suspect]
     Active Substance: DULAGLUTIDE
     Dosage: 3 MG, WEEKLY (1/W)
     Route: 058
  3. TRULICITY [Suspect]
     Active Substance: DULAGLUTIDE
     Dosage: 3 MG, WEEKLY (1/W)
     Route: 058

REACTIONS (9)
  - Blood glucose increased [Recovered/Resolved]
  - Injection site haemorrhage [Recovered/Resolved]
  - Injection site extravasation [Recovered/Resolved]
  - Injection site mass [Recovering/Resolving]
  - Injection site bruising [Not Recovered/Not Resolved]
  - Injection site discolouration [Not Recovered/Not Resolved]
  - Injection site discomfort [Not Recovered/Not Resolved]
  - Accidental underdose [Unknown]
  - Product storage error [Unknown]

NARRATIVE: CASE EVENT DATE: 20220519
